FAERS Safety Report 11801494 (Version 2)
Quarter: 2016Q1

REPORT INFORMATION
  Report Type: Spontaneous
  Country: NL (occurrence: NL)
  Receive Date: 20151204
  Receipt Date: 20160122
  Transmission Date: 20160525
  Serious: Yes (Other)
  Sender: FDA-Public Use
  Company Number: NL-AUROBINDO-AUR-APL-2015-11049

PATIENT
  Age: 10 Year
  Sex: Female

DRUGS (3)
  1. RISPERIDONE AURO 0.5 MG, FILM COATED TABLETS [Suspect]
     Active Substance: RISPERIDONE
     Indication: ANGER
     Dosage: 1 DF, DAILY
     Route: 065
     Dates: start: 20151113
  2. RISPERIDONE AURO 0.5 MG, FILM COATED TABLETS [Suspect]
     Active Substance: RISPERIDONE
     Indication: TINNITUS
  3. RISPERIDONE AURO 0.5 MG, FILM COATED TABLETS [Suspect]
     Active Substance: RISPERIDONE
     Indication: SELF INJURIOUS BEHAVIOUR

REACTIONS (5)
  - Self injurious behaviour [Not Recovered/Not Resolved]
  - Product substitution issue [Not Recovered/Not Resolved]
  - Anger [Not Recovered/Not Resolved]
  - Tinnitus [Not Recovered/Not Resolved]
  - Drug ineffective [Not Recovered/Not Resolved]

NARRATIVE: CASE EVENT DATE: 20151114
